FAERS Safety Report 11254532 (Version 2)
Quarter: 2017Q1

REPORT INFORMATION
  Report Type: Spontaneous
  Country: US (occurrence: US)
  Receive Date: 20150709
  Receipt Date: 20170330
  Transmission Date: 20170428
  Serious: No
  Sender: FDA-Public Use
  Company Number: US-PFIZER INC-2015227769

PATIENT
  Age: 57 Year
  Sex: Female
  Weight: 98 kg

DRUGS (10)
  1. CELEBREX [Suspect]
     Active Substance: CELECOXIB
     Dosage: UNK
  2. MORPHINE SULFATE. [Suspect]
     Active Substance: MORPHINE SULFATE
     Dosage: UNK
  3. REMICADE [Suspect]
     Active Substance: INFLIXIMAB
     Dosage: UNK
  4. ERYTHROMYCIN. [Suspect]
     Active Substance: ERYTHROMYCIN
     Dosage: UNK
  5. LISINOPRIL. [Suspect]
     Active Substance: LISINOPRIL
     Dosage: UNK
  6. POTASSIUM [Suspect]
     Active Substance: POTASSIUM
     Dosage: UNK
     Route: 048
  7. ERYTHROMYCIN BASE [Suspect]
     Active Substance: ERYTHROMYCIN
     Dosage: UNK
  8. CODEINE [Suspect]
     Active Substance: CODEINE
     Dosage: UNK
  9. ORENCIA [Suspect]
     Active Substance: ABATACEPT
     Dosage: UNK
  10. HUMIRA [Suspect]
     Active Substance: ADALIMUMAB
     Dosage: UNK

REACTIONS (1)
  - Drug hypersensitivity [Unknown]
